FAERS Safety Report 15595197 (Version 2)
Quarter: 2018Q4

REPORT INFORMATION
  Report Type: Spontaneous
  Country: JP (occurrence: JP)
  Receive Date: 20181107
  Receipt Date: 20181120
  Transmission Date: 20190205
  Serious: Yes (Other)
  Sender: FDA-Public Use
  Company Number: JP-009507513-1810JPN003905J

PATIENT
  Age: 7 Decade
  Sex: Female

DRUGS (5)
  1. ESLAX INTRAVENOUS 25MG/2.5ML [Suspect]
     Active Substance: ROCURONIUM BROMIDE
     Indication: NEUROMUSCULAR BLOCKING THERAPY
     Dosage: UNK
     Route: 042
  2. BRIDION [Suspect]
     Active Substance: SUGAMMADEX
     Indication: NEUROMUSCULAR BLOCKADE REVERSAL
     Dosage: UNK
     Route: 042
  3. PROPOFOL. [Concomitant]
     Active Substance: PROPOFOL
     Dosage: UNK
     Route: 065
  4. REMIFENTANIL HYDROCHLORIDE. [Concomitant]
     Active Substance: REMIFENTANIL HYDROCHLORIDE
     Dosage: UNK
     Route: 065
  5. DESFLURANE. [Concomitant]
     Active Substance: DESFLURANE
     Dosage: UNK
     Route: 065

REACTIONS (2)
  - Upper airway obstruction [Unknown]
  - Vocal cord paresis [Unknown]
